FAERS Safety Report 21598924 (Version 1)
Quarter: 2022Q4

REPORT INFORMATION
  Report Type: Report from Study
  Country: US (occurrence: US)
  Receive Date: 20221115
  Receipt Date: 20221115
  Transmission Date: 20230112
  Serious: Yes (Other)
  Sender: FDA-Public Use
  Company Number: US-MYLANLABS-2022M1124675

PATIENT
  Sex: Female

DRUGS (2)
  1. FULPHILA [Suspect]
     Active Substance: PEGFILGRASTIM-JMDB
     Indication: Ovarian cancer
     Dosage: UNK
     Route: 065
  2. FULPHILA [Suspect]
     Active Substance: PEGFILGRASTIM-JMDB
     Indication: Neutropenia

REACTIONS (2)
  - Thrombocytopenia [Recovered/Resolved]
  - Fear of injection [Unknown]
